FAERS Safety Report 6540391-9 (Version None)
Quarter: 2010Q1

REPORT INFORMATION
  Report Type: 
  Country: None (occurrence: None)
  Receive Date: 20100113
  Receipt Date: 20091230
  Transmission Date: 20100710
  Serious: Yes (Death, Life-Threatening, Hospitalization)
  Sender: FDA-Public Use
  Company Number: CLOF-10719

PATIENT
  Age: 13 Year
  Sex: Female
  Weight: 37 kg

DRUGS (7)
  1. CLOFARABINE (CLOFARABINE) [Suspect]
     Indication: ACUTE LYMPHOCYTIC LEUKAEMIA
     Dosage: 48 MG, QD, INTRAVENOUS
     Route: 042
     Dates: start: 20071012, end: 20071016
  2. ETOPOSIDE [Suspect]
     Indication: ACUTE LYMPHOCYTIC LEUKAEMIA
     Dosage: 136 MG, QD, INTRAVENOUS
     Route: 042
     Dates: start: 20071012, end: 20071016
  3. CYCLOPHOSPHAMIDE [Suspect]
     Indication: ACUTE LYMPHOCYTIC LEUKAEMIA
     Dosage: 525 MG, QD, INTRAVENOUS
     Route: 042
     Dates: start: 20071012, end: 20071016
  4. EPINEPHRINE [Concomitant]
  5. FLAGYL [Concomitant]
  6. VANCOMYCIN [Concomitant]
  7. GANCICLOVIR [Concomitant]

REACTIONS (42)
  - ACIDOSIS [None]
  - ASCITES [None]
  - BACTERIAL TEST POSITIVE [None]
  - BLOOD CULTURE POSITIVE [None]
  - BRONCHOPULMONARY ASPERGILLOSIS [None]
  - CAPILLARY LEAK SYNDROME [None]
  - CARDIAC DISORDER [None]
  - CARDIO-RESPIRATORY ARREST [None]
  - CEREBRAL HAEMORRHAGE [None]
  - CHOLELITHIASIS [None]
  - COAGULOPATHY [None]
  - CORYNEBACTERIUM INFECTION [None]
  - DEVICE RELATED INFECTION [None]
  - ELECTROLYTE IMBALANCE [None]
  - EMBOLISM [None]
  - FEBRILE NEUTROPENIA [None]
  - HAEMODIALYSIS [None]
  - HEPATOMEGALY [None]
  - HYPERTENSION [None]
  - HYPOTENSION [None]
  - INCOHERENT [None]
  - LEFT VENTRICULAR HYPERTROPHY [None]
  - LEUKAEMIA RECURRENT [None]
  - LIPASE INCREASED [None]
  - LIVER FUNCTION TEST ABNORMAL [None]
  - LUNG CONSOLIDATION [None]
  - MULTI-ORGAN FAILURE [None]
  - NAUSEA [None]
  - NODULE [None]
  - OPPORTUNISTIC INFECTION [None]
  - PANCYTOPENIA [None]
  - PLEURAL EFFUSION [None]
  - PNEUMONIA VIRAL [None]
  - PULMONARY ARTERIAL HYPERTENSION [None]
  - PULMONARY OEDEMA [None]
  - RENAL FAILURE ACUTE [None]
  - RENAL INFARCT [None]
  - SEPTIC SHOCK [None]
  - STREPTOCOCCAL SEPSIS [None]
  - VENOOCCLUSIVE DISEASE [None]
  - VENOOCCLUSIVE LIVER DISEASE [None]
  - VOMITING [None]
